FAERS Safety Report 17833582 (Version 1)
Quarter: 2020Q2

REPORT INFORMATION
  Report Type: Spontaneous
  Country: US (occurrence: US)
  Receive Date: 20200527
  Receipt Date: 20200527
  Transmission Date: 20200714
  Serious: Yes (Hospitalization)
  Sender: FDA-Public Use
  Company Number: None

PATIENT
  Age: 66 Year
  Sex: Male

DRUGS (1)
  1. TEMOZOLOMIDE CAP 140MG [Suspect]
     Active Substance: TEMOZOLOMIDE
     Dosage: ?          OTHER
     Route: 048
     Dates: start: 2020

REACTIONS (3)
  - Fall [None]
  - Muscular weakness [None]
  - Back pain [None]

NARRATIVE: CASE EVENT DATE: 20200527
